FAERS Safety Report 9519054 (Version 2)
Quarter: 2014Q1

REPORT INFORMATION
  Report Type: Spontaneous
  Country: US (occurrence: None)
  Receive Date: 20130305
  Receipt Date: 20140306
  Transmission Date: 20141002
  Serious: Yes (Other)
  Sender: FDA-Public Use
  Company Number: 163-21880-12040793

PATIENT
  Age: 81 Year
  Sex: Female
  Weight: 55.3 kg

DRUGS (1)
  1. REVLIMID (LENALIDOMIDE)(10 MILLIGRAM, CAPSULES) [Suspect]
     Indication: PLASMA CELL MYELOMA
     Dosage: 10 MG, 21 IN 28 D, PO
     Route: 048
     Dates: start: 20100625

REACTIONS (9)
  - Skin hyperpigmentation [None]
  - Drug dose omission [None]
  - Dry skin [None]
  - Pruritus [None]
  - Diarrhoea [None]
  - Joint swelling [None]
  - Platelet count decreased [None]
  - White blood cell count decreased [None]
  - Blood pressure increased [None]
